FAERS Safety Report 9213228 (Version 1)
Quarter: 2013Q2

REPORT INFORMATION
  Report Type: Spontaneous
  Country: US (occurrence: None)
  Receive Date: 20130404
  Receipt Date: 20130404
  Transmission Date: 20140414
  Serious: Yes (Other)
  Sender: FDA-Public Use
  Company Number: None

PATIENT
  Age: 56 Year
  Sex: Female
  Weight: 85.28 kg

DRUGS (1)
  1. VISTARIL [Suspect]
     Dosage: 2 DOSES
     Route: 048

REACTIONS (4)
  - Palpitations [None]
  - Anxiety [None]
  - Blood pressure [None]
  - Hypertension [None]
